FAERS Safety Report 7213480-3 (Version None)
Quarter: 2011Q1

REPORT INFORMATION
  Report Type: 
  Country: None (occurrence: None)
  Receive Date: 20110106
  Receipt Date: 20101223
  Transmission Date: 20110831
  Serious: Yes (Other)
  Sender: FDA-Public Use
  Company Number: PHHY2010GB87594

PATIENT
  Age: 30 Year
  Sex: Female

DRUGS (8)
  1. METHADONE [Suspect]
     Dosage: 80MG
  2. CANNABIS [Suspect]
     Indication: DRUG ABUSE
  3. CODEINE [Suspect]
  4. HEROIN [Suspect]
     Indication: DRUG ABUSE
  5. AMFETAMINE [Suspect]
  6. COCAINE [Suspect]
     Indication: DRUG ABUSE
  7. BENZODIAZEPINES [Suspect]
  8. CITALOPRAM [Suspect]
     Dosage: 20MG

REACTIONS (10)
  - ALANINE AMINOTRANSFERASE INCREASED [None]
  - ELECTROCARDIOGRAM ST SEGMENT ABNORMAL [None]
  - GAMMA-GLUTAMYLTRANSFERASE INCREASED [None]
  - SOMNOLENCE [None]
  - ASPARTATE AMINOTRANSFERASE INCREASED [None]
  - ELECTROCARDIOGRAM QT PROLONGED [None]
  - LIVER FUNCTION TEST ABNORMAL [None]
  - FALL [None]
  - HYPOKALAEMIA [None]
  - ACUTE CORONARY SYNDROME [None]
